FAERS Safety Report 5553491-7 (Version None)
Quarter: 2007Q4

REPORT INFORMATION
  Report Type: 
  Country: None (occurrence: None)
  Receive Date: 20071213
  Receipt Date: 20071205
  Transmission Date: 20080405
  Serious: Yes (Hospitalization)
  Sender: FDA-Public Use
  Company Number: CL-JNJFOC-20070402656

PATIENT
  Sex: Male
  Weight: 66.4 kg

DRUGS (13)
  1. TMC114 [Suspect]
     Route: 048
  2. TMC114 [Suspect]
     Indication: HIV INFECTION
     Dosage: PERMANENT STOP
     Route: 048
  3. NORVIR [Suspect]
     Route: 048
  4. NORVIR [Suspect]
     Indication: HIV INFECTION
     Route: 048
  5. COMBIVIR [Concomitant]
     Route: 048
  6. COMBIVIR [Concomitant]
     Indication: HIV INFECTION
     Route: 048
  7. GEMFIBROZIL [Concomitant]
     Route: 065
  8. GEMFIBROZIL [Concomitant]
     Indication: HYPERTRIGLYCERIDAEMIA
     Route: 065
  9. CHLORPHENIRAMINE TAB [Concomitant]
     Indication: ALLERGY TO PLANTS
     Route: 048
  10. ACETAMINOPHEN [Concomitant]
     Indication: HEADACHE
     Route: 048
  11. CHLORDIAZEPOXIDE WITH CLIDINIUM BROMIDE [Concomitant]
     Indication: INTESTINAL FUNCTIONAL DISORDER
     Route: 048
  12. PHILLIPS ANTACID [Concomitant]
     Indication: ABDOMINAL PAIN UPPER
     Route: 048
  13. SALINE SOLUTION [Concomitant]
     Route: 042

REACTIONS (1)
  - PANCREATITIS [None]
